FAERS Safety Report 7833720-7 (Version None)
Quarter: 2011Q4

REPORT INFORMATION
  Report Type: 
  Country: None (occurrence: None)
  Receive Date: 20111024
  Receipt Date: 20111011
  Transmission Date: 20120403
  Serious: Yes (Other)
  Sender: FDA-Public Use
  Company Number: US-BAYER-2011-081944

PATIENT
  Sex: Female
  Weight: 91.156 kg

DRUGS (4)
  1. NITROFURANTOIN [Concomitant]
  2. HALOBETASOL PROPIONATE [Concomitant]
  3. YAZ [Suspect]
     Indication: ACNE
     Dosage: UNK
     Route: 048
     Dates: start: 20071001, end: 20091201
  4. YAZ [Suspect]
     Indication: PREMENSTRUAL SYNDROME

REACTIONS (8)
  - CHOLECYSTITIS CHRONIC [None]
  - PAIN [None]
  - SPLENOMEGALY [None]
  - HEPATIC NECROSIS [None]
  - MENTAL DISORDER [None]
  - HEPATIC STEATOSIS [None]
  - INJURY [None]
  - HEPATOMEGALY [None]
